FAERS Safety Report 5794414-5 (Version None)
Quarter: 2008Q2

REPORT INFORMATION
  Report Type: 
  Country: None (occurrence: None)
  Receive Date: 20080620
  Receipt Date: 20080617
  Transmission Date: 20081010
  Serious: Yes (Hospitalization, Other)
  Sender: FDA-Public Use
  Company Number: 200813746

PATIENT
  Age: 23 Year
  Sex: Female
  Weight: 59 kg

DRUGS (5)
  1. VIVAGLOBIN [Suspect]
     Indication: IMMUNODEFICIENCY
     Dosage: 43 ML Q1W SC
     Route: 058
     Dates: start: 20080523, end: 20080523
  2. VIVAGLOBIN [Suspect]
     Indication: IMMUNODEFICIENCY
     Dosage: 43 ML Q1W SC
     Route: 058
     Dates: start: 20080523, end: 20080523
  3. VIVAGLOBIN [Suspect]
     Indication: IMMUNODEFICIENCY
     Dosage: 43 ML Q1W SC
     Route: 058
     Dates: start: 20071001
  4. VIVAGLOBIN [Suspect]
  5. TOPAMAX [Concomitant]

REACTIONS (5)
  - ABORTION SPONTANEOUS [None]
  - DRUG EXPOSURE DURING PREGNANCY [None]
  - ESCHERICHIA SEPSIS [None]
  - GENITAL HAEMORRHAGE [None]
  - MUSCLE SPASMS [None]
